FAERS Safety Report 10502219 (Version 1)
Quarter: 2014Q3

REPORT INFORMATION
  Report Type: Spontaneous
  Country: US (occurrence: None)
  Receive Date: 20140815
  Receipt Date: 20140815
  Transmission Date: 20150326
  Serious: Yes (Hospitalization)
  Sender: FDA-Public Use
  Company Number: ADR-2013-01116

PATIENT
  Age: 40 Year
  Sex: Female

DRUGS (1)
  1. BACLOFEN INTRATHECAL [Suspect]
     Active Substance: BACLOFEN
     Indication: MUSCLE SPASTICITY

REACTIONS (5)
  - Hallucination [None]
  - Overdose [None]
  - Agitation [None]
  - Altered state of consciousness [None]
  - Underdose [None]

NARRATIVE: CASE EVENT DATE: 20130628
